FAERS Safety Report 19737977 (Version 1)
Quarter: 2021Q3

REPORT INFORMATION
  Report Type: Spontaneous
  Country: CN (occurrence: CN)
  Receive Date: 20210823
  Receipt Date: 20210823
  Transmission Date: 20211014
  Serious: Yes (Other)
  Sender: FDA-Public Use
  Company Number: NVSC2021CN189103

PATIENT

DRUGS (1)
  1. SACUBITRIL,VALSARTAN [Suspect]
     Active Substance: SACUBITRIL\VALSARTAN
     Indication: CARDIORENAL SYNDROME
     Dosage: 50?100 MG/TIME, 2 TIMES A DAY
     Route: 065

REACTIONS (2)
  - Product use in unapproved indication [Unknown]
  - Hyperkalaemia [Recovered/Resolved]
